FAERS Safety Report 8787962 (Version 1)
Quarter: 2012Q4

REPORT INFORMATION
  Report Type: 
  Country: JP (occurrence: JP)
  Receive Date: 20120914
  Receipt Date: 20120914
  Transmission Date: 20130627
  Serious: Yes (Other)
  Sender: FDA-Public Use
  Company Number: JP-PFIZER INC-2012225587

PATIENT
  Sex: Male

DRUGS (2)
  1. CELECOX [Suspect]
     Indication: BACK PAIN
     Dosage: 200 mg, daily
     Route: 048
  2. MYSLEE [Suspect]
     Indication: INSOMNIA
     Dosage: 10 mg, 1x/day
     Route: 048

REACTIONS (1)
  - Anterograde amnesia [Unknown]
